FAERS Safety Report 6006326-2 (Version None)
Quarter: 2008Q4

REPORT INFORMATION
  Report Type: 
  Country: None (occurrence: None)
  Receive Date: 20081217
  Receipt Date: 20081215
  Transmission Date: 20090506
  Serious: Yes (Hospitalization)
  Sender: FDA-Public Use
  Company Number: A0760369A

PATIENT
  Age: 76 Year
  Sex: Male

DRUGS (9)
  1. AVANDIA [Suspect]
     Dosage: 8MG PER DAY
     Route: 048
     Dates: start: 20040101
  2. LISINOPRIL [Concomitant]
  3. ATENOLOL [Concomitant]
  4. JANUVIA [Concomitant]
  5. ZETIA [Concomitant]
  6. NIASPAN [Concomitant]
  7. ASPIRIN [Concomitant]
  8. LANTUS [Concomitant]
  9. SIMVASTATIN [Concomitant]

REACTIONS (2)
  - BLADDER CANCER [None]
  - COUGH [None]
